FAERS Safety Report 5609574-6 (Version None)
Quarter: 2008Q1

REPORT INFORMATION
  Report Type: 
  Country: None (occurrence: None)
  Receive Date: 20080131
  Receipt Date: 20080125
  Transmission Date: 20080703
  Serious: Yes (Hospitalization)
  Sender: FDA-Public Use
  Company Number: AU-BOEHRINGER INGELHEIM GMBH, GERMANY-2008-BP-01210AU

PATIENT
  Sex: Male

DRUGS (3)
  1. MICARDIS [Suspect]
     Indication: HYPERTENSION
     Route: 048
  2. ASPIRIN [Concomitant]
     Route: 048
  3. WARFARIN SODIUM [Concomitant]
     Route: 048

REACTIONS (1)
  - CONVULSION [None]
